FAERS Safety Report 7423709-4 (Version None)
Quarter: 2011Q2

REPORT INFORMATION
  Report Type: 
  Country: None (occurrence: None)
  Receive Date: 20110411
  Receipt Date: 20110328
  Transmission Date: 20111010
  Serious: Yes (Hospitalization)
  Sender: FDA-Public Use
  Company Number: DAV-AE-MTX-11-022

PATIENT
  Age: 12 Year
  Sex: Female

DRUGS (2)
  1. MERCAPTPPURINE [Concomitant]
  2. METHOTREXATE [Suspect]
     Indication: ACUTE LYMPHOCYTIC LEUKAEMIA
     Dosage: ORAL 25MG/M2/WK
     Route: 048

REACTIONS (2)
  - PNEUMONIA FUNGAL [None]
  - UPPER RESPIRATORY TRACT INFECTION [None]
